FAERS Safety Report 4677711-6 (Version None)
Quarter: 2005Q2

REPORT INFORMATION
  Report Type: 
  Country: None (occurrence: None)
  Receive Date: 20050527
  Receipt Date: 20050513
  Transmission Date: 20051028
  Serious: Yes (Hospitalization)
  Sender: FDA-Public Use
  Company Number: HQ8003106MAR2001

PATIENT
  Age: 55 Year
  Sex: Male

DRUGS (2)
  1. EFFEXOR [Suspect]
     Indication: DEPRESSION
     Dosage: 150 MG 2X PER 1 DAY, ORAL
     Route: 048
     Dates: start: 19980101, end: 20001006
  2. LOSEC (OMEPRAZOLE) [Concomitant]

REACTIONS (3)
  - HYDROCEPHALUS [None]
  - HYPERTENSION [None]
  - SUBARACHNOID HAEMORRHAGE [None]
